FAERS Safety Report 16305228 (Version 2)
Quarter: 2019Q2

REPORT INFORMATION
  Report Type: Spontaneous
  Country: CN (occurrence: CN)
  Receive Date: 20190513
  Receipt Date: 20190603
  Transmission Date: 20190711
  Serious: Yes (Hospitalization, Other)
  Sender: FDA-Public Use
  Company Number: CN-JNJFOC-20190509657

PATIENT

DRUGS (2)
  1. RISPERDAL [Suspect]
     Active Substance: RISPERIDONE
     Indication: SCHIZOPHRENIA
     Dosage: TWICE A DAY, 2 TABLETS AT NOON, 2 TABLETS??AT NIGHT
     Route: 048
     Dates: start: 20190412
  2. RISPERDAL [Suspect]
     Active Substance: RISPERIDONE
     Indication: SCHIZOPHRENIA
     Dosage: TWICE A DAY, 1 TABLET AT NOON AND 2 TABLETS AT??NIGHT.
     Route: 048
     Dates: start: 20190406

REACTIONS (3)
  - Drug ineffective [Unknown]
  - Suspected counterfeit product [Unknown]
  - Schizophrenia [Unknown]
